FAERS Safety Report 10638201 (Version 1)
Quarter: 2014Q4

REPORT INFORMATION
  Report Type: Spontaneous
  Country: US (occurrence: None)
  Receive Date: 20141121
  Receipt Date: 20141121
  Transmission Date: 20150529
  Serious: No
  Sender: FDA-Public Use
  Company Number: 163-10004-14071280

PATIENT
  Age: 69 Year
  Sex: Male

DRUGS (5)
  1. FUROSEMIDE (FUROSEMIDE) (40 MILLIGRAM, TABLETS) [Concomitant]
  2. OTEZLA [Suspect]
     Active Substance: APREMILAST
     Indication: PSORIATIC ARTHROPATHY
     Dosage: 60 MG, 2 IN 1 D, PO
     Route: 048
     Dates: start: 20140624
  3. KLOR-CON (POTASSIUM CHLORIDE) (10 MILLIEQUIVALENTS, TABLETS) [Concomitant]
  4. LUMIGAN (BIMATOPROST) (0.01 PERCENT, SOLUTION) [Concomitant]
  5. PREDNISONE (PREDNISONE) (5 MILLIGRAM, TABLETS) (PREDNISONE) [Concomitant]
     Active Substance: PREDNISONE

REACTIONS (3)
  - Nausea [None]
  - Diarrhoea [None]
  - Night sweats [None]

NARRATIVE: CASE EVENT DATE: 20140625
